FAERS Safety Report 7277202-2 (Version None)
Quarter: 2011Q1

REPORT INFORMATION
  Report Type: 
  Country: None (occurrence: None)
  Receive Date: 20110202
  Receipt Date: 20110202
  Transmission Date: 20110831
  Serious: No
  Sender: FDA-Public Use
  Company Number: None

PATIENT
  Age: 23 Year
  Sex: Female
  Weight: 72.5755 kg

DRUGS (1)
  1. BEYAZ [Suspect]
     Dosage: 1 PILL 1X/DAY

REACTIONS (4)
  - MOOD SWINGS [None]
  - ANXIETY [None]
  - MENTAL DISORDER [None]
  - CONDITION AGGRAVATED [None]
